FAERS Safety Report 8889355 (Version 1)
Quarter: 2012Q4

REPORT INFORMATION
  Report Type: Spontaneous
  Country: US (occurrence: None)
  Receive Date: 20121102
  Receipt Date: 20121102
  Transmission Date: 20130627
  Serious: Yes (Other)
  Sender: FDA-Public Use
  Company Number: None

PATIENT
  Age: 34 Year
  Sex: Male
  Weight: 97.52 kg

DRUGS (1)
  1. CLARITIN D [Suspect]
     Indication: NASAL CONGESTION
     Dosage: 1 Caplet
     Dates: start: 20121031, end: 20121031

REACTIONS (1)
  - Erectile dysfunction [None]
